FAERS Safety Report 5387165-2 (Version None)
Quarter: 2007Q3

REPORT INFORMATION
  Report Type: 
  Country: None (occurrence: None)
  Receive Date: 20070711
  Receipt Date: 20070702
  Transmission Date: 20080115
  Serious: Yes (Other)
  Sender: FDA-Public Use
  Company Number: 2007SP011700

PATIENT
  Age: 50 Year
  Sex: Male
  Weight: 77.1115 kg

DRUGS (6)
  1. PEG-INTRON [Suspect]
     Indication: HEPATITIS C
     Dosage: 15 MCG;QW
     Dates: start: 20070508, end: 20070605
  2. RIBAVIRIN [Suspect]
     Indication: HEPATITIS C
     Dosage: 1200 MG;QD;PO
     Route: 048
     Dates: start: 20070508, end: 20070601
  3. LISINOPRIL [Concomitant]
  4. TOPROL-XL [Concomitant]
  5. MAXZIDE [Concomitant]
  6. IBUPROFEN [Concomitant]

REACTIONS (4)
  - DIZZINESS [None]
  - DYSSTASIA [None]
  - FATIGUE [None]
  - HAEMATEMESIS [None]
